FAERS Safety Report 9004629 (Version 1)
Quarter: 2012Q4

REPORT INFORMATION
  Report Type: Spontaneous
  Country: GB (occurrence: None)
  Receive Date: 20121227
  Receipt Date: 20121227
  Transmission Date: 20130627
  Serious: Yes (Other)
  Sender: FDA-Public Use
  Company Number: AUR-APL-2012-05531

PATIENT
  Age: 67 Year
  Sex: Female
  Weight: 70.75 kg

DRUGS (2)
  1. SERTRALINE [Suspect]
     Route: 048
     Dates: start: 201209
  2. PREMARIN [Concomitant]

REACTIONS (16)
  - Rash [None]
  - Blister [None]
  - Anal candidiasis [None]
  - Anal candidiasis [None]
  - Pruritus [None]
  - Oropharyngeal pain [None]
  - Scab [None]
  - Feeling hot [None]
  - Abdominal discomfort [None]
  - Flatulence [None]
  - Chest pain [None]
  - Eructation [None]
  - Nausea [None]
  - Swelling [None]
  - Back pain [None]
  - Viral infection [None]
